FAERS Safety Report 15293351 (Version 1)
Quarter: 2018Q3

REPORT INFORMATION
  Report Type: Spontaneous
  Country: US (occurrence: US)
  Receive Date: 20180820
  Receipt Date: 20180820
  Transmission Date: 20181010
  Serious: No
  Sender: FDA-Public Use
  Company Number: US-TEVA-814589ACC

PATIENT
  Age: 31 Year
  Sex: Female
  Weight: 46.26 kg

DRUGS (6)
  1. FEXOFENADINE [Suspect]
     Active Substance: FEXOFENADINE\FEXOFENADINE HYDROCHLORIDE
     Indication: RHINORRHOEA
  2. ORTHO TRI CYCLEN [Concomitant]
     Active Substance: ETHINYL ESTRADIOL\NORGESTIMATE
     Dates: start: 2009
  3. FEXOFENADINE [Suspect]
     Active Substance: FEXOFENADINE\FEXOFENADINE HYDROCHLORIDE
     Indication: SNEEZING
  4. FEXOFENADINE [Suspect]
     Active Substance: FEXOFENADINE\FEXOFENADINE HYDROCHLORIDE
     Indication: COUGH
     Dosage: 180 MILLIGRAM DAILY;
     Route: 048
     Dates: start: 20170929, end: 20171001
  5. FEXOFENADINE [Suspect]
     Active Substance: FEXOFENADINE\FEXOFENADINE HYDROCHLORIDE
     Indication: INCREASED UPPER AIRWAY SECRETION
  6. DAY AND NIGHT COLD AND FLU [Concomitant]
     Dates: start: 201709, end: 20170929

REACTIONS (4)
  - Abdominal discomfort [Recovered/Resolved]
  - Drug ineffective [Unknown]
  - Nasal congestion [Not Recovered/Not Resolved]
  - Off label use [Unknown]

NARRATIVE: CASE EVENT DATE: 20170929
